FAERS Safety Report 5352068-6 (Version None)
Quarter: 2007Q2

REPORT INFORMATION
  Report Type: 
  Country: None (occurrence: None)
  Receive Date: 20070611
  Receipt Date: 20070601
  Transmission Date: 20071010
  Serious: Yes (Death)
  Sender: FDA-Public Use
  Company Number: HQWYE476104JUN07

PATIENT
  Sex: Female

DRUGS (1)
  1. RAPAMUNE [Suspect]
     Dosage: 1 MG/FREQUENCY NOT PROVIDED
     Route: 048

REACTIONS (1)
  - DEATH [None]
